FAERS Safety Report 5123415-5 (Version None)
Quarter: 2006Q4

REPORT INFORMATION
  Report Type: 
  Country: None (occurrence: None)
  Receive Date: 20061005
  Receipt Date: 20060926
  Transmission Date: 20070319
  Serious: Yes (Hospitalization)
  Sender: FDA-Public Use
  Company Number: 2006117070

PATIENT
  Sex: Female

DRUGS (3)
  1. LIPITOR [Suspect]
     Dosage: 40 MG (40 MG, 1 IN 1 D)
     Dates: start: 20060921
  2. COVERSYL PLUS (INDAPAMIDE, PERINDOPRIL ERBUMINE) [Concomitant]
  3. VALIUM [Concomitant]

REACTIONS (8)
  - CHEST DISCOMFORT [None]
  - CHEST PAIN [None]
  - DYSPNOEA [None]
  - GENERAL PHYSICAL HEALTH DETERIORATION [None]
  - MIGRAINE [None]
  - PHARYNGOLARYNGEAL PAIN [None]
  - RASH [None]
  - URINARY TRACT INFECTION [None]
